FAERS Safety Report 9008664 (Version 2)
Quarter: 2013Q2

REPORT INFORMATION
  Report Type: Report from Study
  Country: US (occurrence: US)
  Receive Date: 20130111
  Receipt Date: 20130418
  Transmission Date: 20140414
  Serious: Yes (Other)
  Sender: FDA-Public Use
  Company Number: US-PFIZER INC-2010069399

PATIENT
  Age: 72 Year
  Sex: Male
  Weight: 55.33 kg

DRUGS (14)
  1. LIPITOR [Suspect]
     Indication: BLOOD CHOLESTEROL INCREASED
     Dosage: 40 MG, 1X/DAY
     Route: 048
  2. PROCARDIA [Suspect]
     Indication: HYPERTENSION
     Dosage: 30 MG, 2X/DAY
     Route: 048
  3. DILANTIN [Suspect]
     Indication: EPILEPSY
     Dosage: 200 MG, 1X/DAY
     Route: 048
  4. DILANTIN [Suspect]
     Indication: CONVULSION
  5. CELEBREX [Suspect]
     Indication: ARTHRITIS
     Dosage: 200 MG, 1X/DAY
     Route: 048
  6. CELEBREX [Suspect]
     Indication: ANKYLOSING SPONDYLITIS
  7. DEPO-PROVERA [Suspect]
     Dosage: UNK
  8. CARDURA [Suspect]
     Dosage: UNK
  9. ATENOLOL [Concomitant]
     Dosage: UNK
  10. FOLIC ACID [Concomitant]
     Dosage: 1 MG, UNK
  11. ALENDRONATE SODIUM [Concomitant]
     Dosage: UNK, WEEKLY
  12. CALCIUM CARBONATE/ERGOCALCIFEROL [Concomitant]
     Dosage: UNK
  13. HUMIRA [Concomitant]
     Dosage: UNK
  14. PRILOSEC [Concomitant]
     Dosage: UNK

REACTIONS (3)
  - Gastric cancer [Recovered/Resolved]
  - Post gastric surgery syndrome [Not Recovered/Not Resolved]
  - Convulsion [Unknown]
